FAERS Safety Report 9963679 (Version 1)
Quarter: 2014Q1

REPORT INFORMATION
  Report Type: Report from Study
  Country: US (occurrence: US)
  Receive Date: 20140305
  Receipt Date: 20140305
  Transmission Date: 20141002
  Serious: No
  Sender: FDA-Public Use
  Company Number: US-ABBVIE-13P-163-1117256-00

PATIENT
  Age: 67 Year
  Sex: Female

DRUGS (19)
  1. HUMIRA [Suspect]
     Indication: CROHN^S DISEASE
     Dosage: LOADING DOSE
     Dates: start: 20130613, end: 20130613
  2. HUMIRA [Suspect]
     Dosage: SECOND PART OF LOADING DOSE
     Dates: start: 20130627, end: 20130627
  3. HUMIRA [Suspect]
  4. ALLEGRA [Concomitant]
     Indication: MIGRAINE
  5. VYTORIN [Concomitant]
     Indication: BLOOD CHOLESTEROL INCREASED
     Dosage: 10/40 MG 1 PILL NIGHTLY
  6. COREG [Concomitant]
     Indication: BLOOD PRESSURE
     Dosage: AT NIGHT
  7. ATACAND HCT [Concomitant]
     Indication: PRODUCT USED FOR UNKNOWN INDICATION
     Dosage: AT NIGHT
  8. CATAPRES [Concomitant]
     Indication: PRODUCT USED FOR UNKNOWN INDICATION
     Dosage: PATCH
  9. EVISTA [Concomitant]
     Indication: OSTEOPOROSIS
     Dosage: 1 PILL IN THE MORNING
  10. PRILOSEC [Concomitant]
     Indication: DYSPEPSIA
     Dosage: 1 PILL IN THE MORNING
  11. JANUVIA [Concomitant]
     Indication: DIABETES MELLITUS
     Dosage: 1 PILL IN THE MORNING
  12. ACTOS [Concomitant]
     Indication: DIABETES MELLITUS
     Dosage: 1 PILL IN THE MORNING
  13. METFORMIN HCL [Concomitant]
     Indication: DIABETES MELLITUS
     Dosage: 1 PILL IN THE MORNING AND 1 PILL AT NIGHT
  14. ASPIRIN [Concomitant]
     Indication: PRODUCT USED FOR UNKNOWN INDICATION
  15. IRON [Concomitant]
     Indication: PRODUCT USED FOR UNKNOWN INDICATION
     Dosage: EVERY MORNING
  16. VITAMIN C [Concomitant]
     Indication: PRODUCT USED FOR UNKNOWN INDICATION
     Dosage: EVERY MORNING
  17. VITAMIN D [Concomitant]
     Indication: PRODUCT USED FOR UNKNOWN INDICATION
     Dosage: AT NIGHT
  18. VITAMIN E [Concomitant]
     Indication: PRODUCT USED FOR UNKNOWN INDICATION
     Dosage: EVERY MORNING
  19. GLUCOSAMINE CHONDROITIN [Concomitant]
     Indication: ARTHRALGIA
     Dosage: 750/600 EVERY MONRING

REACTIONS (2)
  - Joint swelling [Not Recovered/Not Resolved]
  - Local swelling [Not Recovered/Not Resolved]
